FAERS Safety Report 5084919-7 (Version None)
Quarter: 2006Q3

REPORT INFORMATION
  Report Type: 
  Country: None (occurrence: None)
  Receive Date: 20060821
  Receipt Date: 20060814
  Transmission Date: 20061208
  Serious: Yes (Hospitalization)
  Sender: FDA-Public Use
  Company Number: DE-BOEHRINGER INGELHEIM PHARMACEUTICALS, INC.-2006-DE-04256DE

PATIENT
  Age: 85 Year
  Sex: Female

DRUGS (1)
  1. SIFROL [Suspect]
     Route: 048

REACTIONS (3)
  - ARRHYTHMIA [None]
  - CHOLANGITIS [None]
  - HEPATIC ENZYME INCREASED [None]
